FAERS Safety Report 14613428 (Version 3)
Quarter: 2018Q2

REPORT INFORMATION
  Report Type: Spontaneous
  Country: US (occurrence: US)
  Receive Date: 20180308
  Receipt Date: 20180406
  Transmission Date: 20180711
  Serious: Yes (Other)
  Sender: FDA-Public Use
  Company Number: US-SAOL THERAPEUTICS-2018SAO00302

PATIENT
  Age: 54 Year
  Sex: Female

DRUGS (3)
  1. BACLOFEN. [Suspect]
     Active Substance: BACLOFEN
     Indication: MULTIPLE SCLEROSIS
     Dosage: 860.4 ?G, \DAY
     Route: 037
  2. BACLOFEN. [Suspect]
     Active Substance: BACLOFEN
     Indication: MUSCLE SPASTICITY
  3. HYDROMORPHONE [Suspect]
     Active Substance: HYDROMORPHONE
     Indication: MULTIPLE SCLEROSIS
     Dosage: 3.226 MG, \DAY
     Route: 037

REACTIONS (4)
  - Mental status changes [Unknown]
  - Tongue haemorrhage [Unknown]
  - Tongue biting [Unknown]
  - Pain [Unknown]

NARRATIVE: CASE EVENT DATE: 20180227
